FAERS Safety Report 17640394 (Version 1)
Quarter: 2020Q2

REPORT INFORMATION
  Report Type: Report from Study
  Country: CA (occurrence: CA)
  Receive Date: 20200408
  Receipt Date: 20200408
  Transmission Date: 20200713
  Serious: Yes (Hospitalization)
  Sender: FDA-Public Use
  Company Number: CA-BIOGEN-2020BI00858338

PATIENT
  Sex: Male

DRUGS (5)
  1. SPINRAZA [Suspect]
     Active Substance: NUSINERSEN
     Dosage: DAY 14 (2ND LOADING DOSE)
     Route: 037
  2. SPINRAZA [Suspect]
     Active Substance: NUSINERSEN
     Dosage: DAY 58 (30 DAYS AFTER 3RD LOADING DOSE; 4TH LOADING DOSE)
     Route: 037
  3. SPINRAZA [Suspect]
     Active Substance: NUSINERSEN
     Indication: SPINAL MUSCULAR ATROPHY
     Dosage: DAY 0 (1ST LOADING DOSE)
     Route: 037
     Dates: start: 20190815
  4. SPINRAZA [Suspect]
     Active Substance: NUSINERSEN
     Route: 037
  5. SPINRAZA [Suspect]
     Active Substance: NUSINERSEN
     Dosage: DAY 28 (3RD LOADING DOSE)
     Route: 037

REACTIONS (4)
  - Lethargy [Recovered/Resolved]
  - Heart rate increased [Recovered/Resolved]
  - Oxygen saturation decreased [Recovered/Resolved]
  - Pyrexia [Recovered/Resolved]
